FAERS Safety Report 10617319 (Version 1)
Quarter: 2014Q4

REPORT INFORMATION
  Report Type: Report from Study
  Country: PT (occurrence: PT)
  Receive Date: 20141201
  Receipt Date: 20141201
  Transmission Date: 20150529
  Serious: Yes (Hospitalization, Other)
  Sender: FDA-Public Use
  Company Number: PHHY2014PT149986

PATIENT
  Age: 53 Year
  Sex: Male

DRUGS (1)
  1. CERTICAN [Suspect]
     Active Substance: EVEROLIMUS
     Indication: PROPHYLAXIS AGAINST TRANSPLANT REJECTION
     Dosage: 1.25 MG, BID
     Route: 048
     Dates: start: 20110824

REACTIONS (5)
  - Oedema peripheral [Not Recovered/Not Resolved]
  - Pain in extremity [Not Recovered/Not Resolved]
  - Blood glucose increased [Unknown]
  - Peripheral venous disease [Not Recovered/Not Resolved]
  - Varicose vein [Not Recovered/Not Resolved]

NARRATIVE: CASE EVENT DATE: 201210
